FAERS Safety Report 18500301 (Version 7)
Quarter: 2021Q1

REPORT INFORMATION
  Report Type: Spontaneous
  Country: JP (occurrence: JP)
  Receive Date: 20201113
  Receipt Date: 20210322
  Transmission Date: 20210419
  Serious: Yes (Other)
  Sender: FDA-Public Use
  Company Number: NVSJ2020JP008282

PATIENT
  Age: 94 Year
  Sex: Female

DRUGS (2)
  1. BEOVU [Suspect]
     Active Substance: BROLUCIZUMAB-DBLL
     Dosage: 6 MG
     Route: 031
     Dates: start: 20200806, end: 20200806
  2. BEOVU [Suspect]
     Active Substance: BROLUCIZUMAB-DBLL
     Indication: AGE-RELATED MACULAR DEGENERATION
     Dosage: 6 MG
     Route: 031
     Dates: start: 20200609, end: 20200609

REACTIONS (11)
  - Uveitis [Recovered/Resolved]
  - Anterior chamber inflammation [Recovered/Resolved]
  - Retinal vasculitis [Recovered/Resolved]
  - Chorioretinal atrophy [Unknown]
  - Eye inflammation [Unknown]
  - Retinal vascular occlusion [Recovered/Resolved]
  - Vitreous opacities [Recovered/Resolved]
  - Visual acuity reduced transiently [Recovered/Resolved]
  - Vision blurred [Recovered/Resolved]
  - Vitreous floaters [Recovered/Resolved]
  - Keratic precipitates [Recovered/Resolved]

NARRATIVE: CASE EVENT DATE: 20200816
